FAERS Safety Report 20844571 (Version 2)
Quarter: 2022Q2

REPORT INFORMATION
  Report Type: Spontaneous
  Country: US (occurrence: US)
  Receive Date: 20220518
  Receipt Date: 20220630
  Transmission Date: 20220721
  Serious: No
  Sender: FDA-Public Use
  Company Number: US-LEO Pharma-342416

PATIENT
  Age: 29 Year
  Sex: Male

DRUGS (3)
  1. Clobetasol 0.08% topical ointment [Concomitant]
     Indication: Product used for unknown indication
  2. ADBRY [Suspect]
     Active Substance: TRALOKINUMAB-LDRM
     Indication: Dermatitis atopic
     Dosage: PATIENT ADMINISTERED 4 INJECTIONS AT THE INITIAL DOSE AND THEN 300 MG EVERY TWO WEEKS
     Dates: start: 20220408
  3. TACROLIMUS [Concomitant]
     Active Substance: TACROLIMUS
     Indication: Product used for unknown indication

REACTIONS (2)
  - Dermatitis atopic [Recovering/Resolving]
  - Dermatitis atopic [Recovering/Resolving]

NARRATIVE: CASE EVENT DATE: 20220423
